FAERS Safety Report 6213547-2 (Version None)
Quarter: 2009Q2

REPORT INFORMATION
  Report Type: 
  Country: None (occurrence: None)
  Receive Date: 20090603
  Receipt Date: 20090527
  Transmission Date: 20091009
  Serious: Yes (Other)
  Sender: FDA-Public Use
  Company Number: ES-WATSON-2009-03815

PATIENT
  Age: 70 Year
  Sex: Male

DRUGS (3)
  1. FLUOROURACIL [Suspect]
     Indication: RECTAL CANCER
     Dosage: UNK
     Dates: start: 20060601
  2. IRINOTECAN HCL [Suspect]
     Indication: COLON CANCER METASTATIC
     Dosage: UNK
  3. OXALIPLATIN [Suspect]
     Indication: RECTAL CANCER
     Dosage: UNK

REACTIONS (1)
  - METASTATIC MALIGNANT MELANOMA [None]
